FAERS Safety Report 21169119 (Version 2)
Quarter: 2022Q4

REPORT INFORMATION
  Report Type: Spontaneous
  Country: US (occurrence: US)
  Receive Date: 20220803
  Receipt Date: 20221122
  Transmission Date: 20230113
  Serious: Yes (Other)
  Sender: FDA-Public Use
  Company Number: US-CELGENE-USA-20220300138

PATIENT
  Age: 74 Year
  Sex: Female

DRUGS (2)
  1. POMALYST [Suspect]
     Active Substance: POMALIDOMIDE
     Indication: Plasma cell myeloma
     Dosage: 3 MILLIGRAM, 1 CAPSULE BY MOUTH DAILY FOR 21 DAYS ON AND 7 DAYS OFF, THEN REPEAT
     Route: 048
     Dates: start: 20210913
  2. POMALYST [Suspect]
     Active Substance: POMALIDOMIDE
     Dosage: 1 MILLIGRAM, 1 CAPSULE BY MOUTH DAILY FOR 21 DAYS ON AND 7 DAYS OFF, THEN REPEAT
     Route: 048

REACTIONS (1)
  - Pneumonia [Unknown]
